FAERS Safety Report 6746959-9 (Version None)
Quarter: 2010Q2

REPORT INFORMATION
  Report Type: 
  Country: None (occurrence: None)
  Receive Date: 20100528
  Receipt Date: 20100115
  Transmission Date: 20101027
  Serious: No
  Sender: FDA-Public Use
  Company Number: US-ASTRAZENECA-2010SE02736

PATIENT
  Sex: Male

DRUGS (4)
  1. PRILOSEC OTC [Suspect]
     Route: 048
  2. DIAZEPAM [Interacting]
     Dosage: UNKNOWN
  3. ANTIHISTAMINES [Concomitant]
     Dosage: UNKNOWN
  4. ASPIRIN [Concomitant]
     Dosage: UNKNOWN

REACTIONS (6)
  - ABDOMINAL PAIN UPPER [None]
  - CONSTIPATION [None]
  - DIZZINESS [None]
  - DYSGEUSIA [None]
  - LABELLED DRUG-DRUG INTERACTION MEDICATION ERROR [None]
  - WRONG TECHNIQUE IN DRUG USAGE PROCESS [None]
